FAERS Safety Report 13048454 (Version 3)
Quarter: 2017Q1

REPORT INFORMATION
  Report Type: Spontaneous
  Country: JP (occurrence: JP)
  Receive Date: 20161221
  Receipt Date: 20170208
  Transmission Date: 20170428
  Serious: Yes (Hospitalization)
  Sender: FDA-Public Use
  Company Number: PHJP2016JP027621

PATIENT
  Age: 64 Year
  Sex: Male
  Weight: 59 kg

DRUGS (8)
  1. ROCALTROL [Concomitant]
     Active Substance: CALCITRIOL
     Indication: END STAGE RENAL DISEASE
     Dosage: 0.5 MG, UNK
     Route: 048
  2. TASIGNA [Suspect]
     Active Substance: NILOTINIB
     Indication: CHRONIC MYELOID LEUKAEMIA
     Dosage: 300 MG, BID
     Route: 048
     Dates: start: 20111107, end: 20160819
  3. GASTROM [Concomitant]
     Active Substance: ECABET
     Indication: PRODUCT USED FOR UNKNOWN INDICATION
     Dosage: 1.5 G, BID
     Route: 048
  4. RIONA [Concomitant]
     Active Substance: FERRIC CITRATE ANHYDROUS
     Indication: END STAGE RENAL DISEASE
     Dosage: 250 MG, UNK
     Route: 048
  5. REGPARA [Concomitant]
     Active Substance: CINACALCET HYDROCHLORIDE
     Indication: END STAGE RENAL DISEASE
     Dosage: 37.5 MG, UNK
     Route: 048
  6. BAYASPIRIN [Concomitant]
     Active Substance: ASPIRIN
     Indication: PRODUCT USED FOR UNKNOWN INDICATION
     Dosage: 100 MG, QD
     Route: 048
  7. NEXIUM [Concomitant]
     Active Substance: ESOMEPRAZOLE MAGNESIUM
     Indication: PRODUCT USED FOR UNKNOWN INDICATION
     Dosage: 20 MG, QD
     Route: 048
  8. ALESION [Concomitant]
     Active Substance: EPINASTINE HYDROCHLORIDE
     Indication: END STAGE RENAL DISEASE
     Dosage: 20 MG, QD
     Route: 048

REACTIONS (7)
  - Skin ulcer [Unknown]
  - Limb mass [Not Recovered/Not Resolved]
  - Ulcer [Unknown]
  - Pulse absent [Unknown]
  - Peripheral artery occlusion [Unknown]
  - Pain in extremity [Unknown]
  - Feeling cold [Unknown]

NARRATIVE: CASE EVENT DATE: 201604
